FAERS Safety Report 22350411 (Version 1)
Quarter: 2023Q2

REPORT INFORMATION
  Report Type: Spontaneous
  Country: US (occurrence: None)
  Receive Date: 20230520
  Receipt Date: 20230520
  Transmission Date: 20230722
  Serious: Yes (Other)
  Sender: FDA-Public Use
  Company Number: None

PATIENT
  Age: 37 Year
  Sex: Female
  Weight: 60.75 kg

DRUGS (4)
  1. UBRELVY [Suspect]
     Active Substance: UBROGEPANT
     Indication: Migraine
     Dosage: FREQUENCY : DAILY;?
     Route: 048
     Dates: start: 20230216, end: 20230323
  2. MAGNESIUM [Concomitant]
     Active Substance: MAGNESIUM
  3. RIBOFLAVIN [Concomitant]
     Active Substance: RIBOFLAVIN
  4. NASACORT [Concomitant]
     Active Substance: TRIAMCINOLONE ACETONIDE

REACTIONS (3)
  - Hypoaesthesia [None]
  - Hypoaesthesia oral [None]
  - Aphasia [None]

NARRATIVE: CASE EVENT DATE: 20230323
